FAERS Safety Report 19752059 (Version 1)
Quarter: 2021Q3

REPORT INFORMATION
  Report Type: Spontaneous
  Country: US (occurrence: US)
  Receive Date: 20210826
  Receipt Date: 20210826
  Transmission Date: 20211014
  Serious: No
  Sender: FDA-Public Use
  Company Number: US-MYLANLABS-2021M1048793

PATIENT
  Sex: Female
  Weight: 103 kg

DRUGS (2)
  1. LORATADIN [Concomitant]
     Active Substance: LORATADINE
     Dosage: 10 MILLIGRAM, TID (FOR THREE DAYS)
  2. ESTRADIOL TRANSDERMAL SYSTEM [Suspect]
     Active Substance: ESTRADIOL
     Indication: HYSTERECTOMY
     Dosage: 0.0375 MILIGRAM, QD (CHANGE PATCH ONCE WEEKLY)
     Route: 062
     Dates: end: 2021

REACTIONS (5)
  - Application site pruritus [Recovered/Resolved]
  - Application site erythema [Recovering/Resolving]
  - Application site scar [Not Recovered/Not Resolved]
  - Application site swelling [Recovered/Resolved]
  - Application site urticaria [Recovering/Resolving]

NARRATIVE: CASE EVENT DATE: 20210618
